FAERS Safety Report 7497480-4 (Version None)
Quarter: 2011Q2

REPORT INFORMATION
  Report Type: 
  Country: None (occurrence: None)
  Receive Date: 20110523
  Receipt Date: 20110510
  Transmission Date: 20111010
  Serious: Yes (Other)
  Sender: FDA-Public Use
  Company Number: US-ELI_LILLY_AND_COMPANY-US201104002736

PATIENT
  Sex: Female
  Weight: 76 kg

DRUGS (8)
  1. CARAFATE [Concomitant]
     Dosage: 1 G, QD
     Route: 065
  2. ELMIRON [Concomitant]
     Dosage: 60 MG, QD
     Route: 065
  3. PROXIL [Concomitant]
     Dosage: 60 MG, QD
     Route: 065
  4. NEURONTIN [Concomitant]
     Dosage: 400 MG, TID
     Route: 065
  5. LAMICTAL [Concomitant]
     Dosage: 100 MG, QD
     Route: 065
  6. FORTEO [Suspect]
     Indication: OSTEOPOROSIS
     Dosage: 20 UG, QD
     Route: 065
     Dates: start: 20090101, end: 20110412
  7. AMBIEN [Concomitant]
     Dosage: 10 MG, UNK
     Route: 065
  8. TRAZODONE HCL [Concomitant]
     Dosage: 50 MG, QOD
     Route: 065

REACTIONS (3)
  - GAMMA-GLUTAMYLTRANSFERASE [None]
  - ASPARTATE AMINOTRANSFERASE INCREASED [None]
  - BLOOD ALKALINE PHOSPHATASE INCREASED [None]
